FAERS Safety Report 25288239 (Version 1)
Quarter: 2025Q2

REPORT INFORMATION
  Report Type: Report from Study
  Country: US (occurrence: US)
  Receive Date: 20250509
  Receipt Date: 20250509
  Transmission Date: 20250716
  Serious: Yes (Other)
  Sender: pharmaAND
  Company Number: US-Pharmaand-2025000564

PATIENT
  Sex: Female
  Weight: 58.97 kg

DRUGS (1)
  1. RUBRACA [Suspect]
     Active Substance: RUCAPARIB CAMSYLATE
     Indication: Pancreatic carcinoma
     Dosage: 2 TABLETS TWICE DAILY
     Route: 048

REACTIONS (7)
  - Hepatotoxicity [Unknown]
  - Weight decreased [Unknown]
  - Urinary tract infection [Unknown]
  - Anaemia [Unknown]
  - Seasonal allergy [Unknown]
  - Off label use [Recovered/Resolved]
  - Pancreatic carcinoma [Recovered/Resolved]
